FAERS Safety Report 13256579 (Version 3)
Quarter: 2017Q1

REPORT INFORMATION
  Report Type: Spontaneous
  Country: US (occurrence: US)
  Receive Date: 20170221
  Receipt Date: 20170315
  Transmission Date: 20170428
  Serious: Yes (Hospitalization, Other)
  Sender: FDA-Public Use
  Company Number: US-UNITED THERAPEUTICS-UNT-2017-001895

PATIENT
  Age: 69 Year
  Sex: Male

DRUGS (4)
  1. TYVASO [Suspect]
     Active Substance: TREPROSTINIL
     Dosage: 18 ?G, QID
     Dates: start: 20170206
  2. TYVASO [Suspect]
     Active Substance: TREPROSTINIL
     Indication: PULMONARY ARTERIAL HYPERTENSION
     Dosage: 18-54 MICROGRAMS, QID
     Dates: start: 20170202, end: 20170304
  3. DILTIAZEM. [Concomitant]
     Active Substance: DILTIAZEM
     Indication: PRODUCT USED FOR UNKNOWN INDICATION
  4. ELIQUIS [Concomitant]
     Active Substance: APIXABAN
     Indication: PRODUCT USED FOR UNKNOWN INDICATION

REACTIONS (17)
  - Nausea [Unknown]
  - Hypertension [Unknown]
  - Loss of consciousness [Recovered/Resolved]
  - Insomnia [Unknown]
  - Hypotension [Recovered/Resolved]
  - Dry mouth [Unknown]
  - Headache [Unknown]
  - Blood pressure abnormal [Unknown]
  - Dehydration [Unknown]
  - Surgery [Unknown]
  - Chest discomfort [Unknown]
  - Dizziness [Unknown]
  - Presyncope [Unknown]
  - Dyspnoea [Unknown]
  - Arrhythmia [Unknown]
  - General physical health deterioration [Unknown]
  - Decreased appetite [Unknown]

NARRATIVE: CASE EVENT DATE: 201702
